FAERS Safety Report 21616272 (Version 1)
Quarter: 2022Q4

REPORT INFORMATION
  Report Type: Report from Study
  Country: BG (occurrence: BG)
  Receive Date: 20221118
  Receipt Date: 20221118
  Transmission Date: 20230113
  Serious: Yes (Death, Other)
  Sender: FDA-Public Use
  Company Number: BG-CELGENE-BGR-20210806157

PATIENT
  Sex: Male
  Weight: 55 kg

DRUGS (2)
  1. CIPROFLOXACIN [Concomitant]
     Active Substance: CIPROFLOXACIN
     Indication: Urinary tract infection
     Dosage: 500 MILLIGRAM
     Route: 048
     Dates: start: 20210615, end: 20210620
  2. CHOLECALCIFEROL [Concomitant]
     Active Substance: CHOLECALCIFEROL
     Indication: Multiple sclerosis
     Dosage: 400 IU (INTERNATIONAL UNIT)
     Route: 048
     Dates: start: 20210615, end: 20210715

REACTIONS (1)
  - Bladder cancer [Fatal]

NARRATIVE: CASE EVENT DATE: 20210720
